FAERS Safety Report 12194651 (Version 1)
Quarter: 2016Q1

REPORT INFORMATION
  Report Type: Spontaneous
  Country: US (occurrence: None)
  Receive Date: 20160318
  Receipt Date: 20160318
  Transmission Date: 20160526
  Serious: Yes (Hospitalization, Disabling)
  Sender: FDA-Public Use
  Company Number: None

PATIENT
  Age: 54 Year
  Sex: Female
  Weight: 68.04 kg

DRUGS (3)
  1. WARFARIN [Concomitant]
     Active Substance: WARFARIN
  2. LOVENOX [Suspect]
     Active Substance: ENOXAPARIN SODIUM
  3. XARELTO [Suspect]
     Active Substance: RIVAROXABAN
     Indication: DEEP VEIN THROMBOSIS
     Dosage: BY MOUTH

REACTIONS (11)
  - Refusal of treatment by patient [None]
  - Faeces discoloured [None]
  - Hyperhidrosis [None]
  - Fasting [None]
  - Skin odour abnormal [None]
  - Nausea [None]
  - Emotional disorder [None]
  - Hypersensitivity [None]
  - Asthenia [None]
  - Weight decreased [None]
  - Fear of death [None]

NARRATIVE: CASE EVENT DATE: 20150722
